FAERS Safety Report 11323230 (Version 1)
Quarter: 2015Q3

REPORT INFORMATION
  Report Type: Spontaneous
  Country: US (occurrence: None)
  Receive Date: 20150729
  Receipt Date: 20150729
  Transmission Date: 20151125
  Serious: No
  Sender: FDA-Public Use
  Company Number: None

PATIENT
  Age: 22 Year
  Sex: Female

DRUGS (2)
  1. ACETAMINOPHEN-CODEINE [Suspect]
     Active Substance: ACETAMINOPHEN\CODEINE PHOSPHATE
     Dosage: 300MG/30MG?ONCE?PO
     Route: 048
  2. LEVOFLOXACIN. [Suspect]
     Active Substance: LEVOFLOXACIN
     Indication: INFECTION
     Route: 048
     Dates: start: 20150223, end: 20150223

REACTIONS (7)
  - Swelling face [None]
  - Eyelid oedema [None]
  - Lip swelling [None]
  - Dyspnoea [None]
  - Hypotension [None]
  - Wheezing [None]
  - Dizziness [None]

NARRATIVE: CASE EVENT DATE: 20150223
